FAERS Safety Report 4314879-5 (Version None)
Quarter: 2004Q1

REPORT INFORMATION
  Report Type: 
  Country: None (occurrence: None)
  Receive Date: 20040308
  Receipt Date: 20040224
  Transmission Date: 20041129
  Serious: No
  Sender: FDA-Public Use
  Company Number: 2003SE04635

PATIENT
  Age: 70 Year
  Sex: Female

DRUGS (3)
  1. BLOPRESS [Suspect]
     Indication: HYPERTENSION
     Dosage: 8 MG QD PO
     Route: 048
     Dates: start: 20030716, end: 20030826
  2. MEDAZEPAM [Concomitant]
  3. HERLAT [Concomitant]

REACTIONS (8)
  - CONDITION AGGRAVATED [None]
  - DRUG TOXICITY [None]
  - GASTRITIS [None]
  - HAEMORRHAGE SUBCUTANEOUS [None]
  - LIVER FUNCTION TEST ABNORMAL [None]
  - OEDEMA PERIPHERAL [None]
  - PROTEIN URINE [None]
  - RASH [None]
